FAERS Safety Report 7123613-5 (Version None)
Quarter: 2010Q4

REPORT INFORMATION
  Report Type: 
  Country: None (occurrence: None)
  Receive Date: 20101125
  Receipt Date: 20101110
  Transmission Date: 20110411
  Serious: Yes (Death)
  Sender: FDA-Public Use
  Company Number: US-JNJFOC-20101107390

PATIENT

DRUGS (6)
  1. RISPERDAL [Suspect]
     Indication: BIPOLAR I DISORDER
     Route: 065
  2. RISPERDAL [Suspect]
     Route: 065
  3. UNKNOWN MEDICATION [Suspect]
     Indication: ANXIOLYTIC THERAPY
     Route: 065
  4. UNKNOWN MEDICATION [Suspect]
     Indication: DRUG THERAPY
     Route: 065
  5. UNKNOWN MEDICATION [Suspect]
     Indication: DEPRESSION
     Route: 065
  6. UNKNOWN ANTIPSYCHOTIC [Suspect]
     Indication: ILL-DEFINED DISORDER
     Route: 048

REACTIONS (1)
  - COMPLETED SUICIDE [None]
